FAERS Safety Report 24664232 (Version 1)
Quarter: 2024Q4

REPORT INFORMATION
  Report Type: Spontaneous
  Country: FR (occurrence: FR)
  Receive Date: 20241126
  Receipt Date: 20241126
  Transmission Date: 20250114
  Serious: Yes (Hospitalization)
  Sender: CHEPLAPHARM
  Company Number: None

PATIENT
  Age: 86 Year
  Sex: Male
  Weight: 95 kg

DRUGS (11)
  1. HYDROXYUREA [Suspect]
     Active Substance: HYDROXYUREA
     Indication: Essential thrombocythaemia
     Dosage: 500 MG ON EVEN DAYS; 1G ON ODD DAYS?DAILY DOSE: 500 MILLIGRAM
     Route: 048
     Dates: start: 2016
  2. OMEPRAZOLE [Concomitant]
     Active Substance: OMEPRAZOLE
     Dosage: 20 MG IN THE MORNING?DAILY DOSE: 20 MILLIGRAM
  3. METFORMIN PAMOATE [Suspect]
     Active Substance: METFORMIN PAMOATE
     Indication: Type 2 diabetes mellitus
     Dosage: SCORED TABLET; EVERY 12 HOUR?DAILY DOSE: 1000 MILLIGRAM
     Route: 048
  4. JANUVIA [Suspect]
     Active Substance: SITAGLIPTIN PHOSPHATE
     Indication: Type 2 diabetes mellitus
     Dosage: EVERY 1 DAY?DAILY DOSE: 100 MILLIGRAM
     Route: 048
  5. BISOPROLOL [Suspect]
     Active Substance: BISOPROLOL
     Indication: Cardiac failure
     Dosage: EVERY 1 DAY?DAILY DOSE: 7.5 MILLIGRAM
     Route: 048
  6. ELIQUIS [Concomitant]
     Active Substance: APIXABAN
  7. BILASTINE [Concomitant]
     Active Substance: BILASTINE
     Dosage: 1 TABLET IN THE EVENING?DAILY DOSE: 1 DOSAGE FORM
  8. INNOVAIR [Concomitant]
     Active Substance: BECLOMETHASONE DIPROPIONATE\FORMOTEROL
  9. RYALTRIS [Concomitant]
     Active Substance: MOMETASONE FUROATE MONOHYDRATE\OLOPATADINE HYDROCHLORIDE
  10. ALBUTEROL [Concomitant]
     Active Substance: ALBUTEROL
     Dosage: 2 PUFFS IF NEEDED
  11. GAVISCON [Concomitant]
     Active Substance: ALUMINUM HYDROXIDE\MAGNESIUM CARBONATE
     Indication: Chest discomfort

REACTIONS (5)
  - Pleuropericarditis [Not Recovered/Not Resolved]
  - Oedema peripheral [Recovered/Resolved]
  - Ascites [Unknown]
  - Abdominal pain [Unknown]
  - Dysuria [Unknown]

NARRATIVE: CASE EVENT DATE: 20240929
